FAERS Safety Report 8340319-5 (Version None)
Quarter: 2012Q2

REPORT INFORMATION
  Report Type: 
  Country: None (occurrence: None)
  Receive Date: 20120507
  Receipt Date: 20120507
  Transmission Date: 20120825
  Serious: Yes (Life-Threatening)
  Sender: FDA-Public Use
  Company Number: None

PATIENT
  Sex: Male
  Weight: 91.625 kg

DRUGS (8)
  1. MULTI-VITAMIN [Concomitant]
     Route: 048
  2. TAMSULOSIN HCL [Concomitant]
  3. FENOFIBRATE [Concomitant]
     Route: 048
  4. ARANESP [Concomitant]
     Route: 051
  5. FERAHEME [Suspect]
     Indication: ANAEMIA OF CHRONIC DISEASE
     Dosage: |DOSAGETEXT: 510 MG||FREQ: IV PUSH ONCE||ROUTE: INTRAVENOUS (NOT OTHERWISE SPECIFIED)|
     Route: 042
     Dates: start: 20111209, end: 20111216
  6. DUTASTERIDE [Concomitant]
  7. LANSOPRAZOLE [Concomitant]
  8. GABAPENTIN [Concomitant]

REACTIONS (4)
  - INFUSION RELATED REACTION [None]
  - DYSPNOEA [None]
  - DIZZINESS [None]
  - FLUSHING [None]
